FAERS Safety Report 5484181-7 (Version None)
Quarter: 2007Q4

REPORT INFORMATION
  Report Type: 
  Country: None (occurrence: None)
  Receive Date: 20071009
  Receipt Date: 20071002
  Transmission Date: 20080405
  Serious: Yes (Death)
  Sender: FDA-Public Use
  Company Number: 2007-165114-NL

PATIENT
  Age: 90 Year
  Sex: Female

DRUGS (16)
  1. MIRTAZAPINE [Suspect]
     Dosage: 15 MG/30 MG ORAL
     Route: 048
     Dates: start: 20070828, end: 20070829
  2. MIRTAZAPINE [Suspect]
     Dosage: 15 MG/30 MG ORAL
     Route: 048
     Dates: start: 20070830, end: 20070905
  3. HALOPERIDOL [Suspect]
     Dosage: 1.5 MG/2 MG/1.5 MG/2 MG ORAL
     Route: 048
     Dates: end: 20070823
  4. HALOPERIDOL [Suspect]
     Dosage: 1.5 MG/2 MG/1.5 MG/2 MG ORAL
     Route: 048
     Dates: start: 20070824, end: 20070827
  5. HALOPERIDOL [Suspect]
     Dosage: 1.5 MG/2 MG/1.5 MG/2 MG ORAL
     Route: 048
     Dates: start: 20070828, end: 20070902
  6. HALOPERIDOL [Suspect]
     Dosage: 1.5 MG/2 MG/1.5 MG/2 MG ORAL
     Route: 048
     Dates: start: 20070903, end: 20070905
  7. PIPAMPERONE [Suspect]
     Dosage: 20 MG/40 MG/50 MG ORAL
     Route: 048
     Dates: end: 20070903
  8. PIPAMPERONE [Suspect]
     Dosage: 20 MG/40 MG/50 MG ORAL
     Route: 048
     Dates: start: 20070904, end: 20070904
  9. PIPAMPERONE [Suspect]
     Dosage: 20 MG/40 MG/50 MG ORAL
     Route: 048
     Dates: start: 20070905, end: 20070905
  10. CLOPIDOGREL BISULFATE [Suspect]
     Dosage: 75 MG ORAL
     Route: 048
     Dates: end: 20070905
  11. PANTOPRAZOLE SODIUM [Suspect]
     Dosage: 20 MG ORAL
     Route: 048
     Dates: end: 20070905
  12. MAGNESIUM ASPARTATE HYDROCHLORIDE [Suspect]
     Dosage: 5 MG ORAL
     Route: 048
     Dates: start: 20070822, end: 20070905
  13. ZOLPIDEM TARTRATE [Suspect]
     Dosage: 10 MG ORAL
     Route: 048
     Dates: start: 20070823, end: 20070905
  14. AMLODIPINE [Suspect]
     Dosage: 5 MG ORAL
     Route: 048
     Dates: end: 20070905
  15. NEBIVOLOL HCL [Suspect]
     Dosage: 2.5 MG/5MG ORAL
     Route: 048
     Dates: start: 20070823, end: 20070829
  16. NEBIVOLOL HCL [Suspect]
     Dosage: 2.5 MG/5MG ORAL
     Route: 048
     Dates: start: 20070830, end: 20070905

REACTIONS (5)
  - AGITATION [None]
  - DELIRIUM [None]
  - REGURGITATION [None]
  - SYNCOPE [None]
  - VOMITING [None]
